FAERS Safety Report 5822863-5 (Version None)
Quarter: 2008Q3

REPORT INFORMATION
  Report Type: 
  Country: None (occurrence: None)
  Receive Date: 20080724
  Receipt Date: 20080724
  Transmission Date: 20090109
  Serious: Yes (Other)
  Sender: FDA-Public Use
  Company Number: None

PATIENT
  Age: 39 Year
  Sex: Male

DRUGS (1)
  1. CHANTIX [Suspect]
     Indication: SMOKING CESSATION THERAPY
     Dosage: 1MG BID PO
     Route: 048
     Dates: start: 20080505, end: 20080611

REACTIONS (7)
  - ANXIETY [None]
  - DEPRESSION [None]
  - FLIGHT OF IDEAS [None]
  - INSOMNIA [None]
  - MOOD SWINGS [None]
  - RESTLESSNESS [None]
  - TEARFULNESS [None]
